FAERS Safety Report 17040849 (Version 1)
Quarter: 2019Q4

REPORT INFORMATION
  Report Type: Spontaneous
  Country: US (occurrence: US)
  Receive Date: 20191118
  Receipt Date: 20191118
  Transmission Date: 20200122
  Serious: Yes (Death)
  Sender: FDA-Public Use
  Company Number: US-ROCHE-2473630

PATIENT
  Age: 57 Year
  Sex: Female

DRUGS (13)
  1. FLONASE [Concomitant]
     Active Substance: FLUTICASONE PROPIONATE
  2. PERCOCET [Concomitant]
     Active Substance: ACETAMINOPHEN\OXYCODONE HYDROCHLORIDE
  3. PREDNISONE. [Concomitant]
     Active Substance: PREDNISONE
  4. ERIVEDGE [Suspect]
     Active Substance: VISMODEGIB
     Indication: BASAL CELL CARCINOMA
     Dosage: DAILY FOR 8 WEEKS ON,THEN 8 WEEKS OFF
     Route: 048
  5. CREON [Concomitant]
     Active Substance: PANCRELIPASE AMYLASE\PANCRELIPASE LIPASE\PANCRELIPASE PROTEASE
  6. RANITIDINE. [Concomitant]
     Active Substance: RANITIDINE
  7. ASPIRIN [ACETYLSALICYLIC ACID] [Concomitant]
     Active Substance: ASPIRIN
  8. DIGOXIN. [Concomitant]
     Active Substance: DIGOXIN
  9. IMDUR [Concomitant]
     Active Substance: ISOSORBIDE MONONITRATE
  10. POTASSIUM [Concomitant]
     Active Substance: POTASSIUM
  11. LORAZEPAM. [Concomitant]
     Active Substance: LORAZEPAM
  12. PROLIA [Concomitant]
     Active Substance: DENOSUMAB
  13. METOPROLOL. [Concomitant]
     Active Substance: METOPROLOL

REACTIONS (1)
  - Death [Fatal]

NARRATIVE: CASE EVENT DATE: 20191108
